FAERS Safety Report 5196603-X (Version None)
Quarter: 2007Q1

REPORT INFORMATION
  Report Type: 
  Country: None (occurrence: None)
  Receive Date: 20070103
  Receipt Date: 20061227
  Transmission Date: 20070707
  Serious: Yes (Other)
  Sender: FDA-Public Use
  Company Number: PHBS2006BR19969

PATIENT
  Sex: Male

DRUGS (1)
  1. DIOVAN [Suspect]
     Dosage: 160 MG/DAY
     Route: 048

REACTIONS (3)
  - DRUG DEPENDENCE [None]
  - MEDICATION ERROR [None]
  - TREMOR [None]
